FAERS Safety Report 9885642 (Version 1)
Quarter: 2014Q1

REPORT INFORMATION
  Report Type: Spontaneous
  Country: KR (occurrence: None)
  Receive Date: 20140206
  Receipt Date: 20140206
  Transmission Date: 20141002
  Serious: Yes (Hospitalization)
  Sender: FDA-Public Use
  Company Number: 2014HINLIT0065

PATIENT
  Age: 65 Year
  Sex: Female

DRUGS (1)
  1. LITHIUM [Suspect]
     Indication: BIPOLAR II DISORDER

REACTIONS (4)
  - Creutzfeldt-Jakob disease [None]
  - Toxicity to various agents [None]
  - Myoclonus [None]
  - Cognitive disorder [None]
